FAERS Safety Report 17768099 (Version 1)
Quarter: 2020Q2

REPORT INFORMATION
  Report Type: Report from Study
  Country: FR (occurrence: FR)
  Receive Date: 20200511
  Receipt Date: 20200511
  Transmission Date: 20200714
  Serious: Yes (Other)
  Sender: FDA-Public Use
  Company Number: NVSC2020FR126288

PATIENT
  Sex: Female
  Weight: 66 kg

DRUGS (4)
  1. LCI699 [Suspect]
     Active Substance: OSILODROSTAT
     Dosage: 5 MG, UNKNOWN
     Route: 048
     Dates: start: 20191016
  2. LCI699 [Suspect]
     Active Substance: OSILODROSTAT
     Indication: PITUITARY-DEPENDENT CUSHING^S SYNDROME
     Dosage: 5 MG, UNKNOWN
     Route: 048
     Dates: start: 20190611, end: 20191014
  3. LCI699 [Suspect]
     Active Substance: OSILODROSTAT
     Dosage: 5 MG, QD
     Route: 048
     Dates: start: 20200117
  4. LCI699 [Suspect]
     Active Substance: OSILODROSTAT
     Dosage: 10 MG, QD
     Route: 048
     Dates: start: 20191017, end: 20200116

REACTIONS (5)
  - Urinary tract infection [Unknown]
  - Proteus test positive [Unknown]
  - Pyrexia [Unknown]
  - Pyelonephritis acute [Recovered/Resolved]
  - Adrenal disorder [Recovered/Resolved]

NARRATIVE: CASE EVENT DATE: 20191014
